FAERS Safety Report 24729751 (Version 1)
Quarter: 2024Q4

REPORT INFORMATION
  Report Type: Report from Study
  Country: IN (occurrence: IN)
  Receive Date: 20241213
  Receipt Date: 20241213
  Transmission Date: 20250115
  Serious: Yes (Other)
  Sender: ROCHE
  Company Number: IN-ROCHE-10000152868

PATIENT
  Age: 61 Year
  Sex: Female
  Weight: 80 kg

DRUGS (1)
  1. PHESGO [Suspect]
     Active Substance: HYALURONIDASE-ZZXF\PERTUZUMAB\TRASTUZUMAB
     Indication: Breast cancer
     Route: 058
     Dates: start: 20220901

REACTIONS (1)
  - Metastases to central nervous system [Unknown]
